FAERS Safety Report 5012390-X (Version None)
Quarter: 2006Q2

REPORT INFORMATION
  Report Type: 
  Country: None (occurrence: None)
  Receive Date: 20060414
  Receipt Date: 20060120
  Transmission Date: 20061013
  Serious: No
  Sender: FDA-Public Use
  Company Number: 2006SP000358

PATIENT
  Age: 29 Year
  Sex: Female

DRUGS (10)
  1. LUNESTA [Suspect]
     Indication: DEPRESSION
     Dosage: 3 MG; HS; ORAL
     Route: 048
     Dates: start: 20060119
  2. LUNESTA [Suspect]
     Indication: INSOMNIA
     Dosage: 3 MG; HS; ORAL
     Route: 048
     Dates: start: 20060119
  3. NEURONTN [Concomitant]
  4. ZYPREXA [Concomitant]
  5. WELLBUTRIN [Concomitant]
  6. ADDERALL 10 [Concomitant]
  7. EFFEXOR [Concomitant]
  8. ... [Concomitant]
  9. ... [Concomitant]
  10. ... [Concomitant]

REACTIONS (1)
  - CONFUSIONAL STATE [None]
